FAERS Safety Report 8268965-8 (Version None)
Quarter: 2012Q2

REPORT INFORMATION
  Report Type: 
  Country: None (occurrence: None)
  Receive Date: 20120409
  Receipt Date: 20120330
  Transmission Date: 20120825
  Serious: Yes (Hospitalization)
  Sender: FDA-Public Use
  Company Number: US-BAYER-2011-114447

PATIENT
  Age: 39 Year
  Sex: Female
  Weight: 73.469 kg

DRUGS (6)
  1. YAZ [Suspect]
     Indication: PREMENSTRUAL SYNDROME
     Dosage: UNK
     Route: 048
     Dates: start: 20080201, end: 20090401
  2. XANAX [Concomitant]
  3. CELEXA [Concomitant]
  4. AMBIEN [Concomitant]
  5. NSAID'S [Concomitant]
  6. ASTHMA MEDS; NOS [Concomitant]

REACTIONS (3)
  - PULMONARY EMBOLISM [None]
  - CHEST PAIN [None]
  - DEEP VEIN THROMBOSIS [None]
